FAERS Safety Report 25611600 (Version 2)
Quarter: 2025Q3

REPORT INFORMATION
  Report Type: Spontaneous
  Country: CN (occurrence: CN)
  Receive Date: 20250728
  Receipt Date: 20250919
  Transmission Date: 20251020
  Serious: Yes (Other)
  Sender: ROCHE
  Company Number: CN-ROCHE-10000343526

PATIENT
  Age: 59 Year
  Sex: Female

DRUGS (2)
  1. ACTEMRA [Suspect]
     Active Substance: TOCILIZUMAB
     Indication: Rheumatoid arthritis
     Route: 058
  2. ACTEMRA [Suspect]
     Active Substance: TOCILIZUMAB
     Route: 042

REACTIONS (2)
  - Anaphylactic shock [Recovering/Resolving]
  - Suspected product quality issue [Unknown]

NARRATIVE: CASE EVENT DATE: 20250719
